FAERS Safety Report 4277189-0 (Version None)
Quarter: 2004Q1

REPORT INFORMATION
  Report Type: 
  Country: None (occurrence: None)
  Receive Date: 20040120
  Receipt Date: 20040108
  Transmission Date: 20041129
  Serious: Yes (Hospitalization)
  Sender: FDA-Public Use
  Company Number: US-JNJFOC-20040101617

PATIENT
  Age: 67 Year
  Sex: Male
  Weight: 80.7403 kg

DRUGS (9)
  1. REMICADE [Suspect]
     Indication: RHEUMATOID ARTHRITIS
     Dosage: INTRAVENOUS
     Route: 042
     Dates: start: 20031001
  2. LOPRESSOR [Concomitant]
  3. SALSALATE (SALSALATE) [Concomitant]
  4. IMURAN [Concomitant]
  5. DARVOCET (PROPACET) [Concomitant]
  6. FOLIC ACID [Concomitant]
  7. PREDNISONE [Concomitant]
  8. TYLENOL [Concomitant]
  9. ARAVA [Concomitant]

REACTIONS (7)
  - BACK PAIN [None]
  - BRONCHIECTASIS [None]
  - DERMATITIS EXFOLIATIVE [None]
  - DIARRHOEA [None]
  - HEART RATE INCREASED [None]
  - PNEUMONIA [None]
  - RASH [None]
